FAERS Safety Report 9080529 (Version 1)
Quarter: 2013Q1

REPORT INFORMATION
  Report Type: Spontaneous
  Country: US (occurrence: US)
  Receive Date: 20130218
  Receipt Date: 20130218
  Transmission Date: 20140127
  Serious: Yes (Other)
  Sender: FDA-Public Use
  Company Number: US-MYLANLABS-2012S1020335

PATIENT
  Age: 27 Year
  Sex: Male

DRUGS (5)
  1. ALPRAZOLAM TABLETS, USP [Suspect]
     Indication: POST-TRAUMATIC STRESS DISORDER
     Route: 048
     Dates: start: 201208, end: 201210
  2. ALPRAZOLAM TABLETS, USP [Suspect]
     Indication: ANXIETY
     Route: 048
     Dates: start: 201208, end: 201210
  3. ALPRAZOLAM TABLETS, USP [Suspect]
     Indication: PANIC DISORDER
     Route: 048
     Dates: start: 201208, end: 201210
  4. ALPRAZOLAM TABLETS, USP [Suspect]
     Indication: SLEEP TERROR
     Route: 048
     Dates: start: 201208, end: 201210
  5. REMERON [Concomitant]
     Indication: INSOMNIA

REACTIONS (5)
  - Drug ineffective for unapproved indication [Recovered/Resolved]
  - Convulsion [Not Recovered/Not Resolved]
  - Panic attack [Recovered/Resolved]
  - Sleep terror [Recovered/Resolved]
  - Anxiety [Recovered/Resolved]
